FAERS Safety Report 17714524 (Version 1)
Quarter: 2020Q2

REPORT INFORMATION
  Report Type: Spontaneous
  Country: JP (occurrence: JP)
  Receive Date: 20200427
  Receipt Date: 20200427
  Transmission Date: 20200714
  Serious: Yes (Other)
  Sender: FDA-Public Use
  Company Number: JP-PFIZER INC-2020161164

PATIENT
  Sex: Female

DRUGS (1)
  1. WYPAX 1.0 [Suspect]
     Active Substance: LORAZEPAM
     Indication: EMOTIONAL DISTRESS
     Dosage: 20 DF, SINGLE
     Route: 048
     Dates: start: 20200419, end: 20200419

REACTIONS (6)
  - Dizziness [Recovered/Resolved]
  - Altered state of consciousness [Recovered/Resolved]
  - Intentional overdose [Unknown]
  - Hypersomnia [Recovered/Resolved]
  - Abnormal sensation in eye [Recovered/Resolved]
  - Memory impairment [Recovered/Resolved]

NARRATIVE: CASE EVENT DATE: 20200419
